FAERS Safety Report 15327103 (Version 1)
Quarter: 2018Q3

REPORT INFORMATION
  Report Type: Spontaneous
  Country: US (occurrence: US)
  Receive Date: 20180823
  Receipt Date: 20180823
  Transmission Date: 20181010
  Serious: Yes (Death)
  Sender: FDA-Public Use
  Company Number: None

PATIENT
  Age: 79 Year
  Sex: Male
  Weight: 79.65 kg

DRUGS (19)
  1. ATORVASTATIN [Concomitant]
     Active Substance: ATORVASTATIN
  2. BACLOFEN. [Concomitant]
     Active Substance: BACLOFEN
  3. VITAMIN C [Concomitant]
     Active Substance: ASCORBIC ACID
  4. ASPIRIN. [Concomitant]
     Active Substance: ASPIRIN
  5. CAPECITABINE. [Suspect]
     Active Substance: CAPECITABINE
     Indication: COLON CANCER
     Route: 048
     Dates: start: 20180802
  6. LASIX [Concomitant]
     Active Substance: FUROSEMIDE
  7. TIZANIDINE. [Concomitant]
     Active Substance: TIZANIDINE
  8. LISINOPRIL. [Concomitant]
     Active Substance: LISINOPRIL
  9. SYMBICORT [Concomitant]
     Active Substance: BUDESONIDE\FORMOTEROL FUMARATE DIHYDRATE
  10. GABAPENTIN. [Concomitant]
     Active Substance: GABAPENTIN
  11. MULTI FOR HIM 50+ [Concomitant]
  12. LINZESS [Concomitant]
     Active Substance: LINACLOTIDE
  13. FINASTERIDE. [Concomitant]
     Active Substance: FINASTERIDE
  14. GARLIC OIL [Concomitant]
     Active Substance: GARLIC OIL
  15. RAPAFLO [Concomitant]
     Active Substance: SILODOSIN
  16. METOPROLOL. [Concomitant]
     Active Substance: METOPROLOL
  17. OMEPRAZOLE. [Concomitant]
     Active Substance: OMEPRAZOLE
  18. APAP [Concomitant]
     Active Substance: ACETAMINOPHEN
  19. DOCUSATE [Concomitant]
     Active Substance: DOCUSATE

REACTIONS (1)
  - Disease progression [None]

NARRATIVE: CASE EVENT DATE: 20180823
